FAERS Safety Report 19995938 (Version 2)
Quarter: 2021Q4

REPORT INFORMATION
  Report Type: Report from Study
  Country: DE (occurrence: DE)
  Receive Date: 20211025
  Receipt Date: 20211129
  Transmission Date: 20220303
  Serious: Yes (Other)
  Sender: FDA-Public Use
  Company Number: DE-SHIRE-DE202009125

PATIENT
  Age: 31 Year
  Sex: Female
  Weight: 115 kg

DRUGS (18)
  1. PARATHYROID HORMONE [Suspect]
     Active Substance: PARATHYROID HORMONE
     Indication: Hypoparathyroidism
     Dosage: 50 MILLIGRAM, 1X/DAY:QD
     Route: 058
     Dates: start: 20200218
  2. PARATHYROID HORMONE [Suspect]
     Active Substance: PARATHYROID HORMONE
     Indication: Hypoparathyroidism
     Dosage: 50 MILLIGRAM, 1X/DAY:QD
     Route: 058
     Dates: start: 20200218
  3. PARATHYROID HORMONE [Suspect]
     Active Substance: PARATHYROID HORMONE
     Indication: Hypoparathyroidism
     Dosage: 50 MILLIGRAM, 1X/DAY:QD
     Route: 058
     Dates: start: 20200218
  4. PARATHYROID HORMONE [Suspect]
     Active Substance: PARATHYROID HORMONE
     Dosage: 75 MICROGRAM, 1X/DAY:QD
     Route: 058
     Dates: start: 20200218
  5. PARATHYROID HORMONE [Suspect]
     Active Substance: PARATHYROID HORMONE
     Dosage: 75 MICROGRAM, 1X/DAY:QD
     Route: 058
     Dates: start: 20200218
  6. PARATHYROID HORMONE [Suspect]
     Active Substance: PARATHYROID HORMONE
     Dosage: 75 MICROGRAM, 1X/DAY:QD
     Route: 058
     Dates: start: 20200218
  7. LEVOTHYROXINE SODIUM [Concomitant]
     Active Substance: LEVOTHYROXINE SODIUM
     Indication: Thyroidectomy
     Dosage: 225 MICROGRAM, QD
     Route: 048
     Dates: start: 2020
  8. LEVOTHYROXINE SODIUM [Concomitant]
     Active Substance: LEVOTHYROXINE SODIUM
     Indication: Post procedural complication
  9. VITAMIN D3 [Concomitant]
     Active Substance: CHOLECALCIFEROL
     Indication: Hypoparathyroidism
  10. CALCIUM CITRATE [Concomitant]
     Active Substance: CALCIUM CITRATE
     Indication: Hypoparathyroidism
  11. CHOLECALCIFEROL [Concomitant]
     Active Substance: CHOLECALCIFEROL
     Indication: Hypoparathyroidism
     Dosage: 1000 INTERNATIONAL UNIT, QD
     Route: 065
     Dates: start: 2020
  12. CALCITRIOL [Concomitant]
     Active Substance: CALCITRIOL
     Indication: Hypoparathyroidism
  13. CANDESARTAN [Concomitant]
     Active Substance: CANDESARTAN
     Indication: Hypertonia
  14. ROCALTROL [Concomitant]
     Active Substance: CALCITRIOL
     Indication: Thyroidectomy
     Dosage: 0.25 MICROGRAM, QD
     Route: 048
     Dates: start: 2020
  15. CALCIUM [Concomitant]
     Active Substance: CALCIUM
     Indication: Thyroidectomy
     Dosage: 600 MILLIGRAM, QD
     Route: 048
  16. CALCIUM [Concomitant]
     Active Substance: CALCIUM
     Indication: Pregnancy
  17. METOPROLOL [Concomitant]
     Active Substance: METOPROLOL
     Indication: Hypertension
     Dosage: 95 MILLIGRAM, QD
     Route: 048
  18. METOPROLOL [Concomitant]
     Active Substance: METOPROLOL
     Dosage: 47.5 MILLIGRAM, QD
     Route: 048
     Dates: start: 2020

REACTIONS (5)
  - Hypocalcaemia [Not Recovered/Not Resolved]
  - Hand fracture [Recovered/Resolved]
  - Blood phosphorus increased [Recovered/Resolved]
  - Pain in extremity [Recovered/Resolved]
  - Exposure during pregnancy [Recovered/Resolved]

NARRATIVE: CASE EVENT DATE: 20200307
